FAERS Safety Report 6933424-9 (Version None)
Quarter: 2010Q3

REPORT INFORMATION
  Report Type: 
  Country: None (occurrence: None)
  Receive Date: 20100820
  Receipt Date: 20100806
  Transmission Date: 20110219
  Serious: Yes (Life-Threatening, Other)
  Sender: FDA-Public Use
  Company Number: GB-ELI_LILLY_AND_COMPANY-GB201008002214

PATIENT
  Sex: Female

DRUGS (4)
  1. FORTEO [Suspect]
     Dosage: UNK, UNKNOWN
  2. LEVOTHYROXINE [Concomitant]
  3. BENDROFLUMETHIAZIDE [Concomitant]
  4. COD LIVER OIL [Concomitant]

REACTIONS (1)
  - MYOCARDIAL INFARCTION [None]
